FAERS Safety Report 6922868-7 (Version None)
Quarter: 2010Q3

REPORT INFORMATION
  Report Type: 
  Country: None (occurrence: None)
  Receive Date: 20100813
  Receipt Date: 20100805
  Transmission Date: 20110219
  Serious: Yes (Hospitalization)
  Sender: FDA-Public Use
  Company Number: CA-ABBOTT-10P-028-0656142-00

PATIENT
  Sex: Female
  Weight: 49.1 kg

DRUGS (8)
  1. HUMIRA [Suspect]
     Indication: CROHN'S DISEASE
     Route: 058
     Dates: start: 20081009
  2. FOLIC ACID [Concomitant]
     Indication: PROPHYLAXIS
     Route: 048
     Dates: start: 20060901
  3. FOLIC ACID [Concomitant]
     Indication: FOLATE DEFICIENCY
  4. MULTI-VITAMIN [Concomitant]
     Indication: VITAMIN SUPPLEMENTATION
     Route: 048
     Dates: start: 20070301
  5. ONDANSETRON [Concomitant]
     Indication: PROPHYLAXIS OF NAUSEA AND VOMITING
     Route: 048
     Dates: start: 20071122
  6. FERROUS SULFATE [Concomitant]
     Indication: FATIGUE
     Route: 048
     Dates: start: 20080506
  7. METHOTREXATE [Concomitant]
     Indication: CROHN'S DISEASE
     Dates: start: 20080501
  8. PRILOSEC [Concomitant]
     Indication: NAUSEA
     Route: 048
     Dates: start: 20071116

REACTIONS (1)
  - LYMPHADENITIS [None]
